FAERS Safety Report 9630052 (Version 2)
Quarter: 2014Q1

REPORT INFORMATION
  Report Type: Spontaneous
  Country: US (occurrence: US)
  Receive Date: 20131017
  Receipt Date: 20140331
  Transmission Date: 20141002
  Serious: Yes (Hospitalization)
  Sender: FDA-Public Use
  Company Number: US-B.I. PHARMACEUTICALS,INC./RIDGEFIELD-2013-BI-32763BP

PATIENT
  Sex: Female
  Weight: 68.39 kg

DRUGS (21)
  1. PRADAXA [Suspect]
     Indication: ATRIAL FIBRILLATION
     Dosage: 300 MG
     Route: 048
     Dates: start: 20121025, end: 20121122
  2. ALBUTEROL [Concomitant]
     Indication: DYSPNOEA
     Route: 065
  3. FENTANYL [Concomitant]
     Route: 065
  4. GABAPENTIN [Concomitant]
     Dosage: 900 MG
     Route: 065
     Dates: start: 20110620
  5. HYDRALAZINE [Concomitant]
     Dosage: 75 MG
     Route: 065
  6. INSULIN GLARGINE [Concomitant]
     Route: 065
  7. ISOSORBIDE MONONITRATE [Concomitant]
     Dosage: 30 MG
     Route: 048
     Dates: start: 2007
  8. NICOTINE TRANSDERMAL [Concomitant]
     Route: 062
  9. NORCO [Concomitant]
     Indication: PAIN
     Route: 048
  10. PLAVIX [Concomitant]
     Indication: ANTIPLATELET THERAPY
     Dosage: 75 MG
     Route: 065
     Dates: start: 20110705, end: 201210
  11. SERTRALINE [Concomitant]
     Dosage: 50 MG
     Route: 065
     Dates: start: 2009
  12. SIMVASTATIN [Concomitant]
     Dosage: 20 MG
     Route: 065
     Dates: start: 20110816
  13. SPIRIVA [Concomitant]
     Dosage: 18 MCG
     Route: 055
     Dates: start: 2004
  14. SYMBICORT [Concomitant]
     Dosage: 4 PUF
     Route: 065
  15. LEVOXYL [Concomitant]
     Dosage: 150 MCG
     Route: 065
     Dates: start: 2004
  16. PROAIR [Concomitant]
     Route: 065
  17. DILTIAZEM [Concomitant]
     Dosage: 240 MG
     Route: 065
  18. HYDROCODONE/ACETAMINOPHEN [Concomitant]
     Route: 065
  19. LANTUS [Concomitant]
     Dosage: 40 U
     Route: 065
  20. MIRALAX [Concomitant]
     Dosage: 17 G
     Route: 065
  21. PREDNISONE [Concomitant]
     Dosage: 10 MG
     Route: 065

REACTIONS (5)
  - Gastrointestinal haemorrhage [Unknown]
  - Haemorrhagic anaemia [Unknown]
  - Respiratory failure [Unknown]
  - Colitis ischaemic [Unknown]
  - Coagulopathy [Unknown]
